FAERS Safety Report 13451909 (Version 3)
Quarter: 2017Q3

REPORT INFORMATION
  Report Type: Report from Study
  Country: IT (occurrence: IT)
  Receive Date: 20170418
  Receipt Date: 20170908
  Transmission Date: 20171127
  Serious: Yes (Death, Hospitalization, Other)
  Sender: FDA-Public Use
  Company Number: PHHY2017IT056295

PATIENT
  Age: 79 Year
  Sex: Female

DRUGS (2)
  1. LDK378 [Suspect]
     Active Substance: CERITINIB
     Indication: LUNG NEOPLASM MALIGNANT
     Dosage: 750 MG, QD
     Route: 048
     Dates: start: 20170323, end: 20170410
  2. PREDNISOLONE. [Concomitant]
     Active Substance: PREDNISOLONE
     Indication: PRODUCT USED FOR UNKNOWN INDICATION
     Dosage: 25 MG, QD
     Route: 065

REACTIONS (6)
  - Respiratory disorder [Fatal]
  - Hypernatraemia [Unknown]
  - Dehydration [Unknown]
  - Hyperglycaemia [Unknown]
  - Cardiac failure [Unknown]
  - Confusional state [Unknown]

NARRATIVE: CASE EVENT DATE: 20170411
